FAERS Safety Report 9279619 (Version 4)
Quarter: 2014Q1

REPORT INFORMATION
  Report Type: Report from Study
  Country: DE (occurrence: DE)
  Receive Date: 20130509
  Receipt Date: 20140122
  Transmission Date: 20141002
  Serious: Yes (Death, Life-Threatening, Hospitalization)
  Sender: FDA-Public Use
  Company Number: DE-ROCHE-1221579

PATIENT
  Age: 64 Year
  Sex: Male
  Weight: 82.3 kg

DRUGS (5)
  1. TRASTUZUMAB [Suspect]
     Indication: SIGNET-RING CELL CARCINOMA
     Route: 042
     Dates: start: 20120711
  2. TRASTUZUMAB [Suspect]
     Route: 042
     Dates: end: 20130327
  3. CISPLATIN [Suspect]
     Indication: SIGNET-RING CELL CARCINOMA
     Route: 042
     Dates: start: 20120709, end: 20130327
  4. FLUOROURACIL [Suspect]
     Indication: SIGNET-RING CELL CARCINOMA
     Route: 042
     Dates: start: 20120709, end: 20130327
  5. MITOXANTRON [Suspect]
     Indication: METASTASES TO HEART
     Route: 032
     Dates: start: 20130508, end: 20130508

REACTIONS (5)
  - Cardiac tamponade [Fatal]
  - Metastases to heart [Fatal]
  - Pericardial effusion malignant [Not Recovered/Not Resolved]
  - Pleural effusion [Not Recovered/Not Resolved]
  - Malignant neoplasm progression [Not Recovered/Not Resolved]
